FAERS Safety Report 25133300 (Version 1)
Quarter: 2025Q1

REPORT INFORMATION
  Report Type: Spontaneous
  Country: US (occurrence: US)
  Receive Date: 20250328
  Receipt Date: 20250328
  Transmission Date: 20250408
  Serious: No
  Sender: ALEXION PHARMACEUTICALS
  Company Number: US-AstraZeneca-2022A218352

PATIENT
  Weight: 61.235 kg

DRUGS (2)
  1. SYMBICORT [Suspect]
     Active Substance: BUDESONIDE\FORMOTEROL FUMARATE DIHYDRATE
     Indication: Asthma
  2. SYMBICORT [Suspect]
     Active Substance: BUDESONIDE\FORMOTEROL FUMARATE DIHYDRATE
     Indication: Hypersensitivity

REACTIONS (6)
  - Intentional device misuse [Unknown]
  - Taste disorder [Unknown]
  - Device delivery system issue [Unknown]
  - Drug ineffective [Unknown]
  - Device use issue [Unknown]
  - Overdose [Unknown]
